FAERS Safety Report 7178759-2 (Version None)
Quarter: 2010Q4

REPORT INFORMATION
  Report Type: 
  Country: None (occurrence: None)
  Receive Date: 20101221
  Receipt Date: 20101208
  Transmission Date: 20110411
  Serious: Yes (Other)
  Sender: FDA-Public Use
  Company Number: US-ELI_LILLY_AND_COMPANY-US201012002194

PATIENT
  Sex: Female

DRUGS (9)
  1. FORTEO [Suspect]
     Indication: OSTEOPOROSIS
     Dosage: 20 UG, DAILY (1/D)
  2. LEVOTHYROXINE [Concomitant]
     Dosage: 0.112 MG, DAILY (1/D)
  3. SIMVASTATIN [Concomitant]
     Dosage: 40 MG, DAILY (1/D)
  4. NEURONTIN [Concomitant]
     Dosage: 300 MG, UNK
  5. NEURONTIN [Concomitant]
     Dosage: 100 MG, UNK
  6. CALCIUM [Concomitant]
     Dosage: 1200 MG, DAILY (1/D)
  7. CALCIUM [Concomitant]
     Dosage: 1800 MG, DAILY (1/D)
  8. VITAMIN D3 [Concomitant]
     Dosage: 5000 U, DAILY (1/D)
  9. MULTI-VITAMIN [Concomitant]
     Dosage: UNK, DAILY (1/D)

REACTIONS (5)
  - CONFUSIONAL STATE [None]
  - DIZZINESS [None]
  - EXPIRED DRUG ADMINISTERED [None]
  - INJECTION SITE HAEMORRHAGE [None]
  - MUSCULAR WEAKNESS [None]
